FAERS Safety Report 17467196 (Version 1)
Quarter: 2020Q1

REPORT INFORMATION
  Report Type: Spontaneous
  Country: CN (occurrence: CN)
  Receive Date: 20200227
  Receipt Date: 20200227
  Transmission Date: 20200409
  Serious: Yes (Other)
  Sender: FDA-Public Use
  Company Number: CN-ELI_LILLY_AND_COMPANY-CN202002007894

PATIENT
  Age: 36 Year
  Sex: Female

DRUGS (4)
  1. SODIUM CHLORIDE. [Concomitant]
     Active Substance: SODIUM CHLORIDE
     Dosage: 500 ML, DAILY
     Route: 042
     Dates: start: 20191226, end: 20191228
  2. GEMZAR [Suspect]
     Active Substance: GEMCITABINE HYDROCHLORIDE
     Indication: NASOPHARYNGEAL CANCER
     Dosage: 1.6 MG, CYCLICAL
     Route: 042
     Dates: start: 20191226, end: 20200102
  3. NUO XIN [Suspect]
     Active Substance: CISPLATIN
     Indication: NASOPHARYNGEAL CANCER
     Dosage: 40 MG, DAILY
     Route: 042
     Dates: start: 20191226, end: 20191228
  4. SODIUM CHLORIDE. [Concomitant]
     Active Substance: SODIUM CHLORIDE
     Indication: NASOPHARYNGEAL CANCER
     Dosage: 100 ML, CYCLICAL
     Route: 042
     Dates: start: 20191226, end: 20200102

REACTIONS (7)
  - Frequent bowel movements [Recovering/Resolving]
  - Pancreatitis acute [Recovering/Resolving]
  - Ultrasound liver abnormal [Recovering/Resolving]
  - Abdominal pain [Recovering/Resolving]
  - Nausea [Recovered/Resolved]
  - Abdominal tenderness [Recovering/Resolving]
  - Off label use [Unknown]

NARRATIVE: CASE EVENT DATE: 20200104
